FAERS Safety Report 4923909-9 (Version None)
Quarter: 2006Q1

REPORT INFORMATION
  Report Type: 
  Country: None (occurrence: None)
  Receive Date: 20060227
  Receipt Date: 20051020
  Transmission Date: 20060701
  Serious: Yes (Hospitalization)
  Sender: FDA-Public Use
  Company Number: US-MERCK-0510USA08445

PATIENT
  Sex: Female
  Weight: 66 kg

DRUGS (18)
  1. VIOXX [Suspect]
     Indication: ARTHRITIS
     Route: 048
     Dates: start: 20000606
  2. VIOXX [Suspect]
     Indication: FIBROMYALGIA
     Route: 048
     Dates: start: 20000606
  3. DARVOCET-N 50 [Concomitant]
     Indication: PAIN
     Route: 065
     Dates: start: 20050822
  4. DARVOCET-N 50 [Concomitant]
     Indication: ARTHRITIS
     Route: 065
     Dates: start: 20050822
  5. IMITREX [Concomitant]
     Indication: MIGRAINE
     Route: 065
  6. INDERAL [Concomitant]
     Indication: HYPERTENSION
     Route: 065
  7. INDERAL [Concomitant]
     Indication: CARDIAC DISORDER
     Route: 065
  8. KLOR-CON [Concomitant]
     Route: 065
  9. PRAVACHOL [Concomitant]
     Route: 065
  10. ACCUPRIL [Concomitant]
     Indication: HYPERTENSION
     Route: 065
  11. REGLAN [Concomitant]
     Indication: GASTROOESOPHAGEAL REFLUX DISEASE
     Route: 065
  12. VICODIN [Concomitant]
     Indication: PAIN
     Route: 065
     Dates: start: 20050513
  13. VICODIN [Concomitant]
     Indication: ARTHRITIS
     Route: 065
     Dates: start: 20050513
  14. ADALAT [Concomitant]
     Indication: HYPERTENSION
     Route: 065
  15. PRILOSEC [Concomitant]
     Indication: GASTROOESOPHAGEAL REFLUX DISEASE
     Route: 065
  16. COUMADIN [Concomitant]
     Route: 065
  17. COMPAZINE [Concomitant]
     Indication: NAUSEA
     Route: 065
  18. DIPHENHYDRAMINE HYDROCHLORIDE [Concomitant]
     Route: 065

REACTIONS (12)
  - ACTIVITIES OF DAILY LIVING IMPAIRED [None]
  - ARTERIOSCLEROSIS [None]
  - ASTHMA [None]
  - BLOOD CHOLESTEROL INCREASED [None]
  - BLOOD TRIGLYCERIDES INCREASED [None]
  - CARDIAC FAILURE CONGESTIVE [None]
  - CAROTID ARTERY STENOSIS [None]
  - CEREBROVASCULAR ACCIDENT [None]
  - CHRONIC OBSTRUCTIVE PULMONARY DISEASE [None]
  - DEPRESSION [None]
  - EMOTIONAL DISTRESS [None]
  - MYOCARDIAL INFARCTION [None]
